FAERS Safety Report 16064647 (Version 1)
Quarter: 2019Q1

REPORT INFORMATION
  Report Type: Spontaneous
  Country: US (occurrence: US)
  Receive Date: 20190312
  Receipt Date: 20190312
  Transmission Date: 20190418
  Serious: Yes (Hospitalization, Other)
  Sender: FDA-Public Use
  Company Number: US-GILEAD-2019-0395671

PATIENT
  Age: 61 Year
  Sex: Male
  Weight: 201 kg

DRUGS (1)
  1. YESCARTA [Suspect]
     Active Substance: AXICABTAGENE CILOLEUCEL
     Indication: PRODUCT USED FOR UNKNOWN INDICATION
     Route: 065

REACTIONS (2)
  - Cytokine release syndrome [Recovered/Resolved]
  - CAR T-cell-related encephalopathy syndrome [Recovered/Resolved]

NARRATIVE: CASE EVENT DATE: 20181106
